FAERS Safety Report 11157735 (Version 1)
Quarter: 2015Q2

REPORT INFORMATION
  Report Type: Spontaneous
  Country: IN (occurrence: None)
  Receive Date: 20150601
  Receipt Date: 20150601
  Transmission Date: 20150821
  Serious: Yes (Life-Threatening, Hospitalization)
  Sender: FDA-Public Use
  Company Number: IPC201505-000332

PATIENT
  Age: 43 Year
  Sex: Male

DRUGS (4)
  1. FENTANYL (FENTANYL) (FENTANYL) [Suspect]
     Active Substance: FENTANYL
     Indication: RADICULAR PAIN
     Dosage: NOT OTHERWISE SPECIFIED
     Route: 042
  2. TRAMADOL (TRAMADOL) (TRAMADOL) [Suspect]
     Active Substance: TRAMADOL
     Indication: RADICULAR PAIN
     Dosage: NOT OTHERWISE SPECIFIED
     Route: 042
  3. IBUPROFEN. [Concomitant]
     Active Substance: IBUPROFEN
  4. GABAPENTIN. [Concomitant]
     Active Substance: GABAPENTIN

REACTIONS (5)
  - Serotonin syndrome [None]
  - Drug interaction [None]
  - Cardiac arrest [None]
  - Ventricular fibrillation [None]
  - Supraventricular tachycardia [None]
